FAERS Safety Report 10022883 (Version 2)
Quarter: 2014Q1

REPORT INFORMATION
  Report Type: Report from Study
  Country: DE (occurrence: DE)
  Receive Date: 20140319
  Receipt Date: 20140326
  Transmission Date: 20141002
  Serious: Yes (Hospitalization, Other)
  Sender: FDA-Public Use
  Company Number: DE-GILEAD-2014-0097277

PATIENT
  Age: 63 Year
  Sex: Female
  Weight: 68.2 kg

DRUGS (3)
  1. AMBRISENTAN [Suspect]
     Indication: PULMONARY ARTERIAL HYPERTENSION
     Dosage: 10 MG, QD
     Route: 048
     Dates: start: 20130611
  2. TADALAFIL [Suspect]
     Indication: PULMONARY ARTERIAL HYPERTENSION
     Dosage: 40 MG, QD
     Route: 048
     Dates: start: 20130611
  3. AVALOX [Concomitant]
     Indication: INFECTION
     Dosage: 400 MG, QD
     Route: 048
     Dates: start: 20140310

REACTIONS (1)
  - Pulmonary hypertension [Recovered/Resolved]
